FAERS Safety Report 9099696 (Version 2)
Quarter: 2013Q1

REPORT INFORMATION
  Report Type: Spontaneous
  Country: US (occurrence: US)
  Receive Date: 20130214
  Receipt Date: 20130227
  Transmission Date: 20140127
  Serious: Yes (Other)
  Sender: FDA-Public Use
  Company Number: US-PFIZER INC-2013057295

PATIENT
  Age: 51 Year
  Sex: Male
  Weight: 122.5 kg

DRUGS (3)
  1. LYRICA [Suspect]
     Indication: DIABETIC NEUROPATHY
     Dosage: 100 MG, 3X/DAY
     Route: 048
  2. LEVOCIN [Concomitant]
     Indication: GASTRIC DISORDER
     Dosage: UNK
  3. REGLAN [Concomitant]
     Indication: GASTRIC DISORDER
     Dosage: UNK

REACTIONS (2)
  - Colon cancer [Not Recovered/Not Resolved]
  - Diabetic gastroparesis [Not Recovered/Not Resolved]
